FAERS Safety Report 8764657 (Version 2)
Quarter: 2012Q4

REPORT INFORMATION
  Report Type: 
  Country: JP (occurrence: JP)
  Receive Date: 20120831
  Receipt Date: 20120907
  Transmission Date: 20130627
  Serious: Yes (Hospitalization)
  Sender: FDA-Public Use
  Company Number: JP-PFIZER INC-2012212913

PATIENT
  Age: 87 Year
  Sex: Female
  Weight: 40 kg

DRUGS (12)
  1. CELECOX [Suspect]
     Indication: SPINAL OSTEOARTHRITIS
     Dosage: 100 mg, 2x/day
     Route: 048
     Dates: start: 20120707, end: 20120719
  2. AMLODIPINE BESILATE [Concomitant]
     Dosage: UNK
     Route: 048
  3. PIMOBENDAN [Concomitant]
     Dosage: UNK
  4. GASMOTIN [Concomitant]
     Dosage: UNK
     Route: 048
  5. VENCOLL [Concomitant]
     Dosage: UNK
  6. MIYA-BM [Concomitant]
     Dosage: UNK
     Route: 048
  7. GLORIAMIN [Concomitant]
     Dosage: UNK
  8. VESICARE [Concomitant]
     Dosage: UNK
  9. DEPAS [Concomitant]
     Dosage: UNK
     Route: 048
  10. ALENDRONATE SODIUM [Concomitant]
     Dosage: UNK
  11. PREDNISOLONE [Concomitant]
     Dosage: UNK
     Dates: end: 20120720
  12. REBAMIPIDE [Concomitant]
     Dosage: UNK

REACTIONS (1)
  - Erythema multiforme [Recovering/Resolving]
